FAERS Safety Report 26002196 (Version 1)
Quarter: 2025Q4

REPORT INFORMATION
  Report Type: Report from Study
  Country: TW (occurrence: TW)
  Receive Date: 20251105
  Receipt Date: 20251105
  Transmission Date: 20260118
  Serious: Yes (Hospitalization)
  Sender: BIOGEN
  Company Number: TW-BIOGEN-2089108

PATIENT
  Age: 5 Year
  Sex: Female

DRUGS (1)
  1. SPINRAZA [Suspect]
     Active Substance: NUSINERSEN
     Indication: Spinal muscular atrophy
     Dosage: DOSAGE: 12 MG/5ML??FREQUENCY: 4 LOADING DOSES ON DAYS 0, 14, 28 AND 63. MAINTENANCE DOSE ADMINISTERED ONCE EVERY 4 MONTHS THEREAFTE

REACTIONS (1)
  - Joint dislocation [Recovered/Resolved]
